FAERS Safety Report 11999735 (Version 1)
Quarter: 2016Q1

REPORT INFORMATION
  Report Type: Spontaneous
  Country: US (occurrence: US)
  Receive Date: 20160204
  Receipt Date: 20160204
  Transmission Date: 20160526
  Serious: No
  Sender: FDA-Public Use
  Company Number: US-BAYER-2016-022154

PATIENT
  Age: 51 Year
  Sex: Female
  Weight: 83.9 kg

DRUGS (1)
  1. MIRALAX [Suspect]
     Active Substance: POLYETHYLENE GLYCOL 3350
     Indication: CONSTIPATION
     Dosage: 1 DF, ONCE
     Route: 048
     Dates: start: 20160130, end: 20160130

REACTIONS (4)
  - Muscle spasms [Recovered/Resolved]
  - Gastric disorder [None]
  - Gastric disorder [Recovered/Resolved]
  - Abdominal distension [None]

NARRATIVE: CASE EVENT DATE: 20160130
